FAERS Safety Report 23226549 (Version 1)
Quarter: 2023Q4

REPORT INFORMATION
  Report Type: Spontaneous
  Country: US (occurrence: US)
  Receive Date: 20231124
  Receipt Date: 20231124
  Transmission Date: 20240109
  Serious: Yes (Other)
  Sender: FDA-Public Use
  Company Number: US-PFIZER INC-PV202300189678

PATIENT
  Age: 74 Year
  Sex: Female

DRUGS (2)
  1. IBRANCE [Suspect]
     Active Substance: PALBOCICLIB
     Dosage: 1 CAPSULE DAILY X 21 DAYS OF A 28 DAY CYLE
     Route: 048
     Dates: start: 20231116
  2. EPOETIN ALFA-EPBX [Concomitant]
     Active Substance: EPOETIN ALFA-EPBX
     Dosage: ONCE PUSH
     Route: 058

REACTIONS (11)
  - Hydrocephalus [Unknown]
  - Hypothyroidism [Unknown]
  - Neoplasm progression [Unknown]
  - Foot deformity [Unknown]
  - Headache [Unknown]
  - Neck pain [Unknown]
  - Hyperlipidaemia [Unknown]
  - Onychomycosis [Unknown]
  - Sensory disturbance [Unknown]
  - Temporomandibular joint syndrome [Unknown]
  - Varicose vein [Unknown]
